FAERS Safety Report 11840795 (Version 8)
Quarter: 2017Q1

REPORT INFORMATION
  Report Type: Report from Study
  Country: BE (occurrence: BE)
  Receive Date: 20151216
  Receipt Date: 20170214
  Transmission Date: 20170428
  Serious: Yes (Death, Hospitalization, Other)
  Sender: FDA-Public Use
  Company Number: BE-ASTRAZENECA-2015SF22838

PATIENT
  Age: 29514 Day
  Sex: Male

DRUGS (16)
  1. OLAPARIB [Suspect]
     Active Substance: OLAPARIB
     Indication: PROSTATE CANCER METASTATIC
     Route: 048
     Dates: start: 20150216, end: 20150216
  2. COLOFIBER [Concomitant]
     Indication: CONSTIPATION
     Route: 048
     Dates: start: 20151030
  3. CALCIUM ANTAGONIST ONGUENT [Concomitant]
     Indication: ANAL ULCER
     Dosage: 1 APPLICATION TID
     Route: 054
     Dates: start: 20151029
  4. OXYBUTININE [Concomitant]
     Active Substance: OXYBUTYNIN
     Indication: URINARY TRACT DISORDER
     Route: 048
     Dates: start: 20151127
  5. OLAPARIB [Suspect]
     Active Substance: OLAPARIB
     Indication: PROSTATE CANCER METASTATIC
     Route: 048
     Dates: start: 20141222, end: 20150215
  6. DAFALGAN [Concomitant]
     Active Substance: ACETAMINOPHEN
     Indication: PROCTALGIA
     Dosage: 500.0MG AS REQUIRED
     Route: 048
     Dates: start: 20150521
  7. ABIRATERONE [Suspect]
     Active Substance: ABIRATERONE
     Indication: PROSTATE CANCER METASTATIC
     Route: 048
     Dates: start: 20141222
  8. OLAPARIB [Suspect]
     Active Substance: OLAPARIB
     Indication: PROSTATE CANCER METASTATIC
     Route: 048
     Dates: start: 20150217, end: 20151201
  9. PREDNISONE/PREDNISOLONE [Suspect]
     Active Substance: PREDNISONE
     Indication: PROSTATE CANCER METASTATIC
     Route: 048
     Dates: start: 20141222
  10. DYNATONIC ENERGY PLUS [Concomitant]
     Indication: FATIGUE
     Route: 048
     Dates: start: 20151028
  11. CLEXANE [Concomitant]
     Active Substance: ENOXAPARIN SODIUM
     Indication: CARDIOVASCULAR EVENT PROPHYLAXIS
     Dates: start: 20151119, end: 20151130
  12. FIRMAGON [Concomitant]
     Active Substance: DEGARELIX ACETATE
     Indication: PROSTATE CANCER
     Route: 058
     Dates: start: 201210
  13. LIPANTHYL [Concomitant]
     Active Substance: FENOFIBRATE
     Indication: HYPERCHOLESTEROLAEMIA
     Route: 048
  14. ROCEPHIN [Concomitant]
     Active Substance: CEFTRIAXONE SODIUM
     Indication: URINARY TRACT INFECTION
     Route: 042
     Dates: start: 20151124, end: 20151201
  15. STEOVIT D3 FORTE [Concomitant]
     Indication: VITAMIN SUPPLEMENTATION
     Route: 048
  16. ROCEPHIN [Concomitant]
     Active Substance: CEFTRIAXONE SODIUM
     Indication: BACTERAEMIA
     Route: 042
     Dates: start: 20151124, end: 20151201

REACTIONS (1)
  - Pneumonitis [Fatal]

NARRATIVE: CASE EVENT DATE: 20151128
